FAERS Safety Report 15603575 (Version 2)
Quarter: 2018Q4

REPORT INFORMATION
  Report Type: Report from Study
  Country: CA (occurrence: CA)
  Receive Date: 20181109
  Receipt Date: 20181116
  Transmission Date: 20190205
  Serious: Yes (Hospitalization, Other)
  Sender: FDA-Public Use
  Company Number: PHHY2018CA026074

PATIENT
  Age: 81 Year
  Sex: Male
  Weight: 71.2 kg

DRUGS (21)
  1. ENTRESTO [Suspect]
     Active Substance: SACUBITRIL\VALSARTAN
     Indication: CARDIAC FAILURE
     Dosage: 1 DF (49 MG SACUBITRIL, 51 MG VALSARTAN), BID
     Route: 048
     Dates: start: 20170518, end: 20170615
  2. ENTRESTO [Suspect]
     Active Substance: SACUBITRIL\VALSARTAN
     Dosage: 2.5 DF(49 MG SACUBITRIL, 51 MG VALSARTAN), UNK
     Route: 048
     Dates: start: 20180924
  3. ENTRESTO [Suspect]
     Active Substance: SACUBITRIL\VALSARTAN
     Dosage: 1 DF(97 MG SACUBITRIL, 103 MG VALSARTAN), BID
     Route: 048
     Dates: start: 20180605, end: 20180720
  4. ATORVASTATIN [Concomitant]
     Active Substance: ATORVASTATIN
     Indication: PRODUCT USED FOR UNKNOWN INDICATION
     Dosage: 20 MG, UNK
     Route: 048
     Dates: start: 20170511
  5. FUROSEMIDE. [Concomitant]
     Active Substance: FUROSEMIDE
     Dosage: 60 MG, UNK
     Route: 042
     Dates: start: 20180216, end: 20180217
  6. FUROSEMIDE. [Concomitant]
     Active Substance: FUROSEMIDE
     Dosage: 40 MG, UNK
     Route: 042
     Dates: start: 20180218, end: 20180221
  7. ENTRESTO [Suspect]
     Active Substance: SACUBITRIL\VALSARTAN
     Dosage: 1 DF(49 MG SACUBITRIL, 51 MG VALSARTAN), BID
     Route: 048
     Dates: start: 20170720, end: 20180605
  8. FUROSEMIDE. [Concomitant]
     Active Substance: FUROSEMIDE
     Dosage: 100 MG, UNK
     Route: 048
     Dates: start: 20180224, end: 20180226
  9. ENTRESTO [Suspect]
     Active Substance: SACUBITRIL\VALSARTAN
     Dosage: 1 DF (97 MG SACUBITRIL, 103 MG VALSARTAN), BID
     Route: 048
     Dates: start: 20170615, end: 20170720
  10. FUROSEMIDE. [Concomitant]
     Active Substance: FUROSEMIDE
     Dosage: 80 MG, UNK
     Route: 048
     Dates: start: 20180227
  11. NADOLOL. [Concomitant]
     Active Substance: NADOLOL
     Indication: PRODUCT USED FOR UNKNOWN INDICATION
     Dosage: 80 MG, UNK
     Route: 048
     Dates: start: 20170511, end: 20170615
  12. FUROSEMIDE. [Concomitant]
     Active Substance: FUROSEMIDE
     Indication: PRODUCT USED FOR UNKNOWN INDICATION
     Dosage: 80 MG, UNK
     Route: 048
     Dates: start: 20170517, end: 20171110
  13. FUROSEMIDE. [Concomitant]
     Active Substance: FUROSEMIDE
     Dosage: 40 MG, UNK
     Route: 048
     Dates: start: 20171110, end: 20171126
  14. FUROSEMIDE. [Concomitant]
     Active Substance: FUROSEMIDE
     Dosage: 20 MG, UNK
     Route: 048
     Dates: start: 20180209, end: 20180215
  15. FUROSEMIDE. [Concomitant]
     Active Substance: FUROSEMIDE
     Dosage: 80 MG, UNK
     Route: 048
     Dates: start: 20180222, end: 20180223
  16. METOLAZONE. [Concomitant]
     Active Substance: METOLAZONE
     Dosage: 2.5 MG, UNK
     Route: 048
     Dates: start: 20170720
  17. IRBESARTAN. [Concomitant]
     Active Substance: IRBESARTAN
     Indication: PRODUCT USED FOR UNKNOWN INDICATION
     Dosage: 150 MG, UNK
     Route: 048
     Dates: start: 20170511, end: 20170517
  18. BISOPROLOL [Concomitant]
     Active Substance: BISOPROLOL
     Indication: PRODUCT USED FOR UNKNOWN INDICATION
     Dosage: 5 MG, UNK
     Route: 048
     Dates: start: 20170615, end: 20171027
  19. ENTRESTO [Suspect]
     Active Substance: SACUBITRIL\VALSARTAN
     Dosage: 1 DF(49 MG SACUBITRIL, 51 MG VALSARTAN), BID
     Route: 048
     Dates: start: 20180720, end: 20180924
  20. METOLAZONE. [Concomitant]
     Active Substance: METOLAZONE
     Indication: PRODUCT USED FOR UNKNOWN INDICATION
     Dosage: 2.5 MG, UNK
     Route: 048
     Dates: start: 20170511
  21. SPIRONOLACTONE. [Concomitant]
     Active Substance: SPIRONOLACTONE
     Indication: PRODUCT USED FOR UNKNOWN INDICATION
     Dosage: 12.5 MG, UNK
     Route: 048
     Dates: start: 20170511, end: 20171110

REACTIONS (16)
  - Dizziness [Recovered/Resolved]
  - Wrong technique in product usage process [Unknown]
  - Abdominal pain upper [Recovered/Resolved]
  - Dysuria [Recovered/Resolved]
  - Urinary tract infection [Recovered/Resolved]
  - Oedema peripheral [Recovered/Resolved]
  - Cardiac failure congestive [Recovered/Resolved]
  - Fall [Recovered/Resolved]
  - Diarrhoea [Recovered/Resolved]
  - General physical health deterioration [Unknown]
  - Gastrointestinal haemorrhage [Recovered/Resolved]
  - Wheezing [Recovered/Resolved]
  - Melaena [Recovered/Resolved]
  - Product prescribing error [Unknown]
  - Upper gastrointestinal haemorrhage [Recovered/Resolved]
  - Cardiac failure [Recovered/Resolved]

NARRATIVE: CASE EVENT DATE: 20170615
